FAERS Safety Report 19039792 (Version 1)
Quarter: 2021Q1

REPORT INFORMATION
  Report Type: Report from Study
  Country: CA (occurrence: CA)
  Receive Date: 20210323
  Receipt Date: 20210323
  Transmission Date: 20210420
  Serious: Yes (Other)
  Sender: FDA-Public Use
  Company Number: CA-JNJFOC-20201007147

PATIENT
  Age: 52 Year
  Sex: Female

DRUGS (4)
  1. PREDNISONE. [Suspect]
     Active Substance: PREDNISONE
     Dosage: WEANING DOWN EVERY 2 WEEKS. STARTING FIRST WEEK OF 3 TABS DAILY FOR 2 WEEKS
     Route: 048
     Dates: start: 2020
  2. REMICADE [Suspect]
     Active Substance: INFLIXIMAB
     Indication: CROHN^S DISEASE
     Dosage: LAST REMICADE INFUSION WAS ON 05/OCT/2020. ON 10?DEC?2020, PATIENT RECEIVED 120TH 600 MG DOSE.ON 08?
     Route: 042
     Dates: start: 20081114
  3. REMICADE [Suspect]
     Active Substance: INFLIXIMAB
     Dosage: ON 15?MAR?2021, PATIENT RECEIVED 123RD 600 MG DOSE
     Route: 042
     Dates: start: 20081114
  4. PREDNISONE. [Suspect]
     Active Substance: PREDNISONE
     Indication: PRODUCT USED FOR UNKNOWN INDICATION
     Route: 048
     Dates: start: 202009

REACTIONS (7)
  - Fatigue [Unknown]
  - Abdominal pain lower [Not Recovered/Not Resolved]
  - Nerve injury [Unknown]
  - Gastrointestinal scarring [Unknown]
  - Intestinal resection [Unknown]
  - General physical health deterioration [Unknown]
  - Insomnia [Unknown]

NARRATIVE: CASE EVENT DATE: 2020
